FAERS Safety Report 7164352-4 (Version None)
Quarter: 2010Q4

REPORT INFORMATION
  Report Type: 
  Country: None (occurrence: None)
  Receive Date: 20101215
  Receipt Date: 20101206
  Transmission Date: 20110411
  Serious: Yes (Hospitalization, Other)
  Sender: FDA-Public Use
  Company Number: US-WATSON-2010-15889

PATIENT
  Age: 57 Year
  Sex: Female

DRUGS (1)
  1. FLUOROURACIL [Suspect]
     Indication: ADENOCARCINOMA
     Dosage: UNK
     Route: 042

REACTIONS (4)
  - ARTERIOSPASM CORONARY [None]
  - CARDIOTOXICITY [None]
  - CHEST PAIN [None]
  - ELECTROCARDIOGRAM ST SEGMENT ELEVATION [None]
